FAERS Safety Report 23337204 (Version 1)
Quarter: 2023Q4

REPORT INFORMATION
  Report Type: Spontaneous
  Country: IN (occurrence: IN)
  Receive Date: 20231226
  Receipt Date: 20231226
  Transmission Date: 20240110
  Serious: Yes (Other)
  Sender: FDA-Public Use
  Company Number: IN-BIOCON-BBL2023001366

PATIENT

DRUGS (1)
  1. INSULIN GLARGINE [Suspect]
     Active Substance: INSULIN GLARGINE
     Indication: Product used for unknown indication
     Dosage: UNK
     Route: 065
     Dates: start: 20231007, end: 20231212

REACTIONS (5)
  - Malaise [Unknown]
  - Blood glucose increased [Unknown]
  - Device breakage [Unknown]
  - Device leakage [Unknown]
  - Product contamination physical [Unknown]
